FAERS Safety Report 22142873 (Version 1)
Quarter: 2023Q1

REPORT INFORMATION
  Report Type: Spontaneous
  Country: US (occurrence: US)
  Receive Date: 20230327
  Receipt Date: 20230327
  Transmission Date: 20230418
  Serious: No
  Sender: FDA-Public Use
  Company Number: US-TRIS PHARMA, INC.-23US010776

PATIENT

DRUGS (6)
  1. ACETAMINOPHEN\HYDROCODONE BITARTRATE [Suspect]
     Active Substance: ACETAMINOPHEN\HYDROCODONE BITARTRATE
     Indication: Pain
     Dosage: UNK UNK, Q 6 HR
     Route: 048
     Dates: start: 20230220, end: 20230311
  2. METHOCARBAMOL [Suspect]
     Active Substance: METHOCARBAMOL
     Indication: Spinal fusion surgery
     Dosage: UNK
     Route: 048
     Dates: start: 20230220, end: 20230311
  3. METHOCARBAMOL [Suspect]
     Active Substance: METHOCARBAMOL
     Indication: Muscle relaxant therapy
  4. GABAPENTIN [Concomitant]
     Active Substance: GABAPENTIN
     Indication: Spinal fusion surgery
     Dosage: UNK
     Route: 048
     Dates: start: 20230220
  5. TAMSULOSIN [Concomitant]
     Active Substance: TAMSULOSIN
     Indication: Spinal fusion surgery
     Dosage: UNK
     Route: 048
     Dates: start: 20230220
  6. NITROFURANTOIN [Concomitant]
     Active Substance: NITROFURANTOIN
     Indication: Spinal fusion surgery
     Dosage: UNK
     Route: 048
     Dates: start: 20230220

REACTIONS (3)
  - Dysphemia [Recovered/Resolved]
  - Tremor [Recovered/Resolved]
  - Head titubation [Recovered/Resolved]

NARRATIVE: CASE EVENT DATE: 20200222
